FAERS Safety Report 5239766-X (Version None)
Quarter: 2007Q1

REPORT INFORMATION
  Report Type: 
  Country: None (occurrence: None)
  Receive Date: 20070216
  Receipt Date: 20070206
  Transmission Date: 20070707
  Serious: Yes (Death, Hospitalization, Other)
  Sender: FDA-Public Use
  Company Number: JP-ELI_LILLY_AND_COMPANY-JP200611001783

PATIENT
  Age: 71 Year
  Sex: Male
  Weight: 63 kg

DRUGS (23)
  1. GEMZAR [Suspect]
     Indication: PANCREATIC CARCINOMA
     Dosage: 1000 MG, OTHER
     Dates: start: 20060607, end: 20060607
  2. GEMZAR [Suspect]
     Dosage: 600 MG, OTHER
     Route: 042
     Dates: start: 20060705, end: 20060830
  3. GEMZAR [Suspect]
     Dosage: 200 MG, OTHER
     Route: 042
     Dates: start: 20060906, end: 20061004
  4. OMEPRAL [Concomitant]
     Dosage: 10 MG, DAILY (1/D)
     Route: 048
     Dates: start: 20060603
  5. CAMOSTAT MESILATE [Concomitant]
     Dosage: 100 MG, 3/D
     Route: 048
     Dates: start: 20060615
  6. FUROSEMIDE [Concomitant]
     Dosage: 40 MG, DAILY (1/D)
     Route: 048
     Dates: start: 20060619
  7. PENTAGIN [Concomitant]
     Indication: PAIN
     Dosage: 25 MG, 3/D
     Route: 048
     Dates: start: 20060616
  8. PENTAGIN [Concomitant]
     Dosage: 25 MG, 2/D
     Route: 048
     Dates: start: 20060616
  9. MAGMITT [Concomitant]
     Dosage: 750 MG, DAILY (1/D)
     Route: 048
     Dates: start: 20060628
  10. SIGMART [Concomitant]
     Dosage: 15 MG, DAILY (1/D)
     Route: 048
  11. CYANOCOBALAMIN [Concomitant]
     Dosage: 1.5 MG, DAILY (1/D)
     Route: 048
  12. DILTIAZEM HCL [Concomitant]
     Dosage: 200 MG, DAILY (1/D)
     Route: 048
     Dates: end: 20060626
  13. PENTAGIN [Concomitant]
     Dosage: 15 MG, DAILY (1/D)
     Route: 065
     Dates: end: 20060627
  14. KENTAN [Concomitant]
     Dosage: 180 MG, DAILY (1/D)
     Route: 048
  15. SENNOSIDE [Concomitant]
     Dosage: 12 MG, EACH EVENING
     Route: 048
  16. PREDNISOLONE [Concomitant]
     Dosage: 10 MG, DAILY (1/D)
     Route: 065
  17. PREDNISOLONE [Concomitant]
     Dosage: 15 MG, DAILY (1/D)
     Route: 048
     Dates: start: 20060911
  18. NAFAMOSTAT MESILATE [Concomitant]
     Indication: PANCREATITIS
     Dosage: 10 MG, UNK
     Route: 042
     Dates: start: 20060601, end: 20060607
  19. PIOGLITAZONE HCL [Concomitant]
     Indication: DIABETES MELLITUS
     Dosage: 15 MG, UNK
     Route: 065
     Dates: end: 20060627
  20. NASEA [Concomitant]
     Dosage: UNK, UNK
     Route: 042
     Dates: start: 20060906, end: 20061004
  21. NAFAMOSTAT MESILATE [Concomitant]
     Route: 048
     Dates: start: 20060608
  22. CORTICOSTEROIDS [Concomitant]
     Dosage: 250 MG, UNK
     Route: 065
  23. CORTICOSTEROIDS [Concomitant]
     Dosage: 100 MG, UNK
     Route: 065

REACTIONS (12)
  - ANOREXIA [None]
  - BILE DUCT STENOSIS [None]
  - BONE MARROW FAILURE [None]
  - DISSEMINATED INTRAVASCULAR COAGULATION [None]
  - INTERSTITIAL LUNG DISEASE [None]
  - MALAISE [None]
  - MALIGNANT NEOPLASM PROGRESSION [None]
  - NAUSEA [None]
  - OEDEMA [None]
  - PAIN [None]
  - PANCREATITIS [None]
  - WEIGHT DECREASED [None]
